FAERS Safety Report 8393165-0 (Version None)
Quarter: 2012Q2

REPORT INFORMATION
  Report Type: 
  Country: None (occurrence: None)
  Receive Date: 20120529
  Receipt Date: 20120424
  Transmission Date: 20120825
  Serious: No
  Sender: FDA-Public Use
  Company Number: US-ABBOTT-12P-163-0931270-00

PATIENT
  Sex: Male
  Weight: 118.04 kg

DRUGS (3)
  1. ANDROGEL [Suspect]
     Indication: BLOOD TESTOSTERONE DECREASED
     Dates: start: 20111101, end: 20120301
  2. LISINOPRIL [Concomitant]
     Indication: HYPERTENSION
  3. WELLBUTRIN [Concomitant]
     Indication: DISTURBANCE IN ATTENTION

REACTIONS (3)
  - INSOMNIA [None]
  - RESTLESS LEGS SYNDROME [None]
  - FORMICATION [None]
